FAERS Safety Report 17469351 (Version 2)
Quarter: 2020Q2

REPORT INFORMATION
  Report Type: Spontaneous
  Country: US (occurrence: US)
  Receive Date: 20200227
  Receipt Date: 20200429
  Transmission Date: 20200713
  Serious: Yes (Hospitalization)
  Sender: FDA-Public Use
  Company Number: US-VERTEX PHARMACEUTICALS-2020-003842

PATIENT
  Age: 31 Year
  Sex: Female
  Weight: 59 kg

DRUGS (3)
  1. CAYSTON [Concomitant]
     Active Substance: AZTREONAM
     Dosage: UNK
  2. TOBI PODHALER [Concomitant]
     Active Substance: TOBRAMYCIN
     Dosage: UNK
  3. KALYDECO [Suspect]
     Active Substance: IVACAFTOR
     Indication: CYSTIC FIBROSIS
     Dosage: 150 MG, BID
     Route: 048

REACTIONS (1)
  - Infective pulmonary exacerbation of cystic fibrosis [Unknown]

NARRATIVE: CASE EVENT DATE: 202002
